FAERS Safety Report 21651613 (Version 1)
Quarter: 2022Q4

REPORT INFORMATION
  Report Type: Spontaneous
  Country: US (occurrence: None)
  Receive Date: 20221123
  Receipt Date: 20221123
  Transmission Date: 20230113
  Serious: Yes (Hospitalization)
  Sender: FDA-Public Use
  Company Number: None

PATIENT
  Age: 79 Year
  Sex: Female
  Weight: 58.51 kg

DRUGS (13)
  1. MEKINIST [Suspect]
     Active Substance: TRAMETINIB DIMETHYL SULFOXIDE
     Indication: Intraductal proliferative breast lesion
     Dosage: FREQUENCY : DAILY;?
     Route: 048
  2. TAFINLAR [Suspect]
     Active Substance: DABRAFENIB MESYLATE
     Indication: Intraductal proliferative breast lesion
     Dosage: FREQUENCY : TWICE A DAY;?
     Route: 048
  3. ASPIRIN [Concomitant]
     Active Substance: ASPIRIN
  4. ATORVASTATIN [Concomitant]
     Active Substance: ATORVASTATIN
  5. LEVOTHYROXINE [Concomitant]
     Active Substance: LEVOTHYROXINE
  6. MEPRON [Concomitant]
     Active Substance: ATOVAQUONE
  7. METOPROLOL [Concomitant]
     Active Substance: METOPROLOL
  8. MIRTAZAPINE [Concomitant]
     Active Substance: MIRTAZAPINE
  9. NYSTATIN [Concomitant]
     Active Substance: NYSTATIN
  10. PANTOPRAZOLE [Concomitant]
     Active Substance: PANTOPRAZOLE
  11. SULFAMETHOZAZOLE-TRIMETHOPRIM [Concomitant]
  12. TRAMADOL [Concomitant]
     Active Substance: TRAMADOL
  13. VITAMIN D3 [Concomitant]
     Active Substance: CHOLECALCIFEROL

REACTIONS (2)
  - Drug intolerance [None]
  - Pyrexia [None]
